FAERS Safety Report 5322198-3 (Version None)
Quarter: 2007Q2

REPORT INFORMATION
  Report Type: 
  Country: None (occurrence: None)
  Receive Date: 20070511
  Receipt Date: 20070430
  Transmission Date: 20071010
  Serious: Yes (Other)
  Sender: FDA-Public Use
  Company Number: US-ROCHE-427626

PATIENT
  Age: 53 Year
  Sex: Male

DRUGS (10)
  1. PEG-INTERFERON A-2A (RO 25-8310) [Suspect]
     Indication: GLOMERULONEPHRITIS
     Route: 065
     Dates: start: 20031001, end: 20040601
  2. PEG-INTERFERON A-2A (RO 25-8310) [Suspect]
     Route: 065
     Dates: start: 20060101, end: 20060501
  3. RIBAVIRIN [Suspect]
     Indication: GLOMERULONEPHRITIS
     Route: 065
     Dates: start: 20031001, end: 20040601
  4. PREDNISONE TAB [Suspect]
     Indication: GLOMERULONEPHRITIS
     Dosage: DOSE GRADUALLY TAPERED AFTER THREE WEEKS AND THEN DISCONTINUED AFTER 5 WEEKS.
     Route: 065
     Dates: start: 20040601
  5. PREDNISONE TAB [Suspect]
     Route: 065
     Dates: start: 20060501
  6. HYDROCHLOROTHIAZIDE [Concomitant]
  7. LABETALOL HCL [Concomitant]
  8. FUROSEMIDE [Concomitant]
  9. AMLODIPINE [Concomitant]
  10. PANTOPRAZOLE [Concomitant]

REACTIONS (1)
  - FACTOR VIII INHIBITION [None]
